FAERS Safety Report 8443933-1 (Version None)
Quarter: 2012Q2

REPORT INFORMATION
  Report Type: 
  Country: None (occurrence: None)
  Receive Date: 20120618
  Receipt Date: 20120607
  Transmission Date: 20120825
  Serious: Yes (Other)
  Sender: FDA-Public Use
  Company Number: ES-SANOFI-AVENTIS-2012SA040878

PATIENT
  Age: 64 Year
  Sex: Female

DRUGS (9)
  1. CALCIUM/COLECALCIFEROL [Concomitant]
     Route: 065
     Dates: start: 20110223
  2. LEVOTHYROXINE SODIUM [Concomitant]
     Route: 065
     Dates: start: 20090110
  3. MULTAQ [Suspect]
     Route: 048
     Dates: start: 20101021
  4. OMEPRAZOLE [Concomitant]
     Route: 065
     Dates: start: 20091105
  5. ALENDRONATE SODIUM [Concomitant]
     Route: 065
     Dates: start: 20110224
  6. SINTROM [Concomitant]
     Route: 065
     Dates: start: 20120414
  7. LOSARTAN POTASSIUM [Concomitant]
     Route: 065
  8. PAROXETINE HCL [Concomitant]
     Route: 065
  9. SIMVASTATIN [Concomitant]
     Route: 065
     Dates: start: 20100114

REACTIONS (1)
  - BREAST CANCER [None]
